FAERS Safety Report 8812617 (Version 1)
Quarter: 2012Q4

REPORT INFORMATION
  Report Type: Report from Study
  Country: GB (occurrence: GB)
  Receive Date: 20120927
  Receipt Date: 20120927
  Transmission Date: 20130627
  Serious: Yes (Other)
  Sender: FDA-Public Use
  Company Number: GB-TEVA-2011005412

PATIENT
  Age: 42 Year
  Sex: Female

DRUGS (8)
  1. LESTAURTINIB [Suspect]
     Indication: ACUTE MYELOID LEUKAEMIA
     Dosage: Lestaurtinib (CEP-701) or Placebo
     Route: 048
     Dates: start: 20111003
  2. DAUNORUBICIN [Suspect]
     Indication: ACUTE MYELOID LEUKAEMIA
     Dates: start: 20110921, end: 20111025
  3. ARA-C [Suspect]
     Indication: ACUTE MYELOID LEUKAEMIA
     Dates: start: 20110921, end: 20111001
  4. AZTREONAM [Concomitant]
     Dates: start: 20111004, end: 20111015
  5. AMBISOME [Concomitant]
     Dosage: 300mg/250mg
     Dates: start: 20111002
  6. NORETHISTERONE [Concomitant]
     Dates: start: 20110919
  7. ACYCLOVIR [Concomitant]
     Dates: start: 20110919
  8. RANITIDINE [Concomitant]
     Dates: start: 20111001

REACTIONS (1)
  - Alanine aminotransferase increased [Recovered/Resolved]
